FAERS Safety Report 7462211-0 (Version None)
Quarter: 2011Q2

REPORT INFORMATION
  Report Type: 
  Country: None (occurrence: None)
  Receive Date: 20110506
  Receipt Date: 20110405
  Transmission Date: 20111010
  Serious: Yes (Hospitalization)
  Sender: FDA-Public Use
  Company Number: US-BAYER-201039895NA

PATIENT
  Age: 22 Year
  Sex: Female
  Weight: 90.703 kg

DRUGS (4)
  1. YAZ [Suspect]
     Indication: PRODUCT USED FOR UNKNOWN INDICATION
     Dosage: UNK
     Route: 048
     Dates: start: 20090601, end: 20091201
  2. ZITHROMAX [Concomitant]
  3. ALBUTEROL INHALER [Concomitant]
  4. VENTOLIN [Concomitant]

REACTIONS (1)
  - PULMONARY EMBOLISM [None]
